FAERS Safety Report 6716291-8 (Version None)
Quarter: 2010Q2

REPORT INFORMATION
  Report Type: 
  Country: None (occurrence: None)
  Receive Date: 20100507
  Receipt Date: 20100504
  Transmission Date: 20101027
  Serious: Yes (Death, Hospitalization)
  Sender: FDA-Public Use
  Company Number: KR-ELI_LILLY_AND_COMPANY-KR201003007581

PATIENT
  Sex: Male
  Weight: 67.5 kg

DRUGS (10)
  1. GEMCITABINE HCL [Suspect]
     Indication: NON-SMALL CELL LUNG CANCER
     Dosage: 1000 MG/M2, TWICE IN THREE WEEKS(DAYS 1 AND 8)
     Route: 042
     Dates: start: 20090925, end: 20091126
  2. CETUXIMAB [Suspect]
     Indication: NON-SMALL CELL LUNG CANCER
     Dosage: 250 MG/M2, WEEKLY (1/W)
     Route: 042
     Dates: start: 20090925, end: 20091202
  3. CARBOPLATIN [Suspect]
     Indication: NON-SMALL CELL LUNG CANCER
     Dosage: 5 AUC ONCE EVERY THREE WEEKS
     Route: 042
     Dates: start: 20090925, end: 20091116
  4. MEGESTROL ACETATE [Concomitant]
     Indication: PROGESTERONE
     Dosage: 15 ML, UNK
     Dates: start: 20091202
  5. MINOCYCLINE [Concomitant]
     Indication: FUNGAL INFECTION
     Dosage: 200 MG, UNK
     Dates: start: 20091202
  6. MEQUITAZINE [Concomitant]
     Indication: ANTIALLERGIC THERAPY
     Dosage: 10 MG, UNK
     Dates: start: 20091202
  7. MAGNESIUM ASPARTATE [Concomitant]
     Indication: LAXATIVE SUPPORTIVE CARE
     Dosage: 1500 MG, UNK
     Dates: start: 20091202
  8. LORAZEPAM [Concomitant]
     Indication: SEDATION
     Dosage: 1 MG, UNK
     Dates: start: 20091202
  9. AZELASTINE HCL [Concomitant]
     Indication: ANTIALLERGIC THERAPY
     Dosage: 2 MG, UNK
     Dates: start: 20091202
  10. LORATADINE [Concomitant]
     Indication: ANTIALLERGIC THERAPY
     Dosage: 10 MG, UNK
     Dates: start: 20091202

REACTIONS (4)
  - HAEMATOCHEZIA [None]
  - MALIGNANT NEOPLASM PROGRESSION [None]
  - PNEUMONIA [None]
  - PYREXIA [None]
